FAERS Safety Report 18270847 (Version 2)
Quarter: 2020Q4

REPORT INFORMATION
  Report Type: Report from Study
  Country: US (occurrence: US)
  Receive Date: 20200915
  Receipt Date: 20201002
  Transmission Date: 20210113
  Serious: Yes (Life-Threatening, Hospitalization)
  Sender: FDA-Public Use
  Company Number: NVSC2020US249105

PATIENT
  Age: 57 Year
  Sex: Male

DRUGS (3)
  1. CYCLOPHOSPHAMIDE. [Suspect]
     Active Substance: CYCLOPHOSPHAMIDE
     Indication: SQUAMOUS CELL CARCINOMA OF HEAD AND NECK
     Dosage: 50 MG/KG, QD (DAILY) (60 MG/KG,1 IN 1 D)
     Route: 042
     Dates: start: 20191203, end: 20191204
  2. PROLEUKIN [Suspect]
     Active Substance: ALDESLEUKIN
     Indication: PRODUCT USED FOR UNKNOWN INDICATION
     Dosage: 1800000 IU/KG  (600000 IU/KG,1 IN 8 HR)
     Route: 042
     Dates: start: 20191211, end: 20191212
  3. FLUDARABINE [Suspect]
     Active Substance: FLUDARABINE PHOSPHATE
     Indication: SQUAMOUS CELL CARCINOMA OF HEAD AND NECK
     Dosage: 25, (MG/M^2) QD (25 MG/M2,1 IN 1 D)
     Route: 065
     Dates: start: 20191205, end: 20191207

REACTIONS (1)
  - Capillary leak syndrome [Recovered/Resolved]

NARRATIVE: CASE EVENT DATE: 20191211
